FAERS Safety Report 23943869 (Version 1)
Quarter: 2024Q2

REPORT INFORMATION
  Report Type: Spontaneous
  Country: US (occurrence: US)
  Receive Date: 20240606
  Receipt Date: 20240606
  Transmission Date: 20240716
  Serious: Yes (Other)
  Sender: FDA-Public Use
  Company Number: US-AMGEN-USASP2024107520

PATIENT

DRUGS (2)
  1. INFLIXIMAB [Suspect]
     Active Substance: INFLIXIMAB
     Indication: Inflammatory bowel disease
     Dosage: UNK
     Route: 065
  2. ADALIMUMAB [Suspect]
     Active Substance: ADALIMUMAB\ISOPROPYL ALCOHOL
     Indication: Inflammatory bowel disease
     Dosage: UNK
     Route: 065

REACTIONS (3)
  - Drug-induced liver injury [Unknown]
  - Drug reaction with eosinophilia and systemic symptoms [Unknown]
  - Stevens-Johnson syndrome [Unknown]
